FAERS Safety Report 7242652-7 (Version None)
Quarter: 2011Q1

REPORT INFORMATION
  Report Type: 
  Country: None (occurrence: None)
  Receive Date: 20110118
  Receipt Date: 20110107
  Transmission Date: 20110831
  Serious: Yes (Other)
  Sender: FDA-Public Use
  Company Number: 70379

PATIENT
  Sex: Female

DRUGS (1)
  1. OXY MAXIMUM FACE WASH 10% BENZOYL PEROXIDE. [Suspect]
     Indication: ACNE
     Dosage: DAILY AS DIRECTED
     Dates: start: 20090622, end: 20090805

REACTIONS (2)
  - DEFORMITY [None]
  - SKIN DISCOLOURATION [None]
